FAERS Safety Report 23243551 (Version 1)
Quarter: 2023Q4

REPORT INFORMATION
  Report Type: Spontaneous
  Country: FR (occurrence: FR)
  Receive Date: 20231130
  Receipt Date: 20231130
  Transmission Date: 20240109
  Serious: Yes (Death, Hospitalization, Other)
  Sender: FDA-Public Use
  Company Number: None

PATIENT

DRUGS (1)
  1. TRIUMEQ [Suspect]
     Active Substance: ABACAVIR SULFATE\DOLUTEGRAVIR SODIUM\LAMIVUDINE
     Indication: HIV infection
     Dosage: 1 DF, QD
     Route: 064
     Dates: start: 20210123, end: 20210923

REACTIONS (8)
  - Ventricular septal defect [Fatal]
  - Anomalous pulmonary venous connection [Fatal]
  - Respiratory distress [Fatal]
  - Atrial septal defect [Fatal]
  - Foetal growth restriction [Not Recovered/Not Resolved]
  - Premature baby [Not Recovered/Not Resolved]
  - Low birth weight baby [Not Recovered/Not Resolved]
  - Foetal exposure during pregnancy [Unknown]

NARRATIVE: CASE EVENT DATE: 20210513
